FAERS Safety Report 8524231-4 (Version None)
Quarter: 2012Q3

REPORT INFORMATION
  Report Type: 
  Country: None (occurrence: None)
  Receive Date: 20120720
  Receipt Date: 20120711
  Transmission Date: 20120928
  Serious: Yes (Disabling)
  Sender: FDA-Public Use
  Company Number: MX-ASTRAZENECA-2012SE48688

PATIENT
  Age: 70 Year
  Sex: Female
  Weight: 58 kg

DRUGS (7)
  1. CLONAZEPAM [Concomitant]
     Indication: SLEEP DISORDER
     Route: 048
     Dates: start: 20120501
  2. DISTENAL [Concomitant]
     Indication: GASTRITIS
     Route: 048
     Dates: start: 20120704
  3. BRUPACIL [Concomitant]
     Indication: GASTRITIS
     Route: 048
     Dates: start: 20120704, end: 20120709
  4. A.S.COR [Concomitant]
     Indication: HYPOTENSION
     Route: 048
  5. RANITIDINE [Concomitant]
     Indication: GASTRITIS
     Route: 048
     Dates: start: 20120704
  6. ONBRIZE [Concomitant]
     Route: 048
     Dates: start: 20120501
  7. NEXIUM [Suspect]
     Indication: GASTRITIS
     Route: 048
     Dates: start: 20120627, end: 20120710

REACTIONS (5)
  - DYSGEUSIA [None]
  - GASTRITIS [None]
  - LIVER DISORDER [None]
  - DYSPEPSIA [None]
  - DRUG INEFFECTIVE [None]
